FAERS Safety Report 9106579 (Version 2)
Quarter: 2013Q1

REPORT INFORMATION
  Report Type: Report from Study
  Country: SE (occurrence: SE)
  Receive Date: 20130221
  Receipt Date: 20130301
  Transmission Date: 20140127
  Serious: Yes (Death, Life-Threatening, Hospitalization)
  Sender: FDA-Public Use
  Company Number: SE-PFIZER INC-2013064102

PATIENT
  Age: 58 Year
  Sex: Male
  Weight: 94.8 kg

DRUGS (8)
  1. IRINOTECAN HCL [Suspect]
     Indication: COLORECTAL CANCER METASTATIC
     Dosage: 180 MG/M2, ON DAY ONE EVERY 14 DAYS
     Route: 042
     Dates: start: 20121128, end: 20130124
  2. FLUOROURACIL [Suspect]
     Indication: COLORECTAL CANCER METASTATIC
     Dosage: 400 MG/M2, ON DAY ONE EVERY 14 DAYS
     Route: 040
     Dates: start: 20121128, end: 20130124
  3. FLUOROURACIL [Suspect]
     Dosage: 2400 MG/M2 ON DAYS ONE AND TWO EVERY 14 DAYS
     Route: 042
     Dates: start: 20121128, end: 20130124
  4. FOLINIC ACID [Suspect]
     Indication: COLORECTAL CANCER METASTATIC
     Dosage: 400 MG/M2, ON DAY ONE EVERY 14 DAYS
     Route: 042
     Dates: start: 20121128, end: 20130124
  5. BLINDED THERAPY [Suspect]
     Indication: COLORECTAL CANCER METASTATIC
     Dosage: UNK
     Route: 042
     Dates: start: 20121128, end: 20130124
  6. OMEPRAZOLE [Concomitant]
     Indication: ABDOMINAL PAIN UPPER
     Dosage: UNK
     Dates: start: 20120521
  7. METOCLOPRAMIDE [Concomitant]
     Indication: NAUSEA
     Dosage: UNK
     Dates: start: 20120313
  8. PROPIOMAZINE [Concomitant]
     Indication: INSOMNIA
     Dosage: UNK
     Dates: start: 20121220

REACTIONS (2)
  - Large intestine perforation [Fatal]
  - Ileus [Fatal]
